FAERS Safety Report 20802413 (Version 1)
Quarter: 2022Q2

REPORT INFORMATION
  Report Type: Spontaneous
  Country: US (occurrence: None)
  Receive Date: 20220506
  Receipt Date: 20220506
  Transmission Date: 20220721
  Serious: No
  Sender: FDA-Public Use
  Company Number: None

PATIENT
  Sex: Female

DRUGS (1)
  1. IBANDRONATE SODIUM [Suspect]
     Active Substance: IBANDRONATE SODIUM

REACTIONS (5)
  - Paraesthesia oral [None]
  - Dysgeusia [None]
  - Oral discomfort [None]
  - Lip disorder [None]
  - Dysphagia [None]
